FAERS Safety Report 8622095-1 (Version None)
Quarter: 2012Q3

REPORT INFORMATION
  Report Type: 
  Country: None (occurrence: None)
  Receive Date: 20120826
  Receipt Date: 20120817
  Transmission Date: 20120928
  Serious: Yes (Hospitalization)
  Sender: FDA-Public Use
  Company Number: FR-TEVA-354657ISR

PATIENT
  Sex: Male

DRUGS (3)
  1. PAMIDRONIC ACID [Suspect]
     Indication: METASTATIC PAIN
     Dosage: .5 MILLIGRAM DAILY;
     Route: 042
     Dates: start: 20120326, end: 20120326
  2. CISPLATIN [Suspect]
     Indication: ADENOCARCINOMA
     Dosage: 15 MILLIGRAM DAILY;
     Route: 042
     Dates: start: 20120327, end: 20120327
  3. ALIMTA [Concomitant]
     Indication: ADENOCARCINOMA
     Dosage: 950 MILLIGRAM DAILY;
     Route: 042

REACTIONS (1)
  - AGRANULOCYTOSIS [None]
